FAERS Safety Report 8070889-6 (Version None)
Quarter: 2012Q1

REPORT INFORMATION
  Report Type: 
  Country: None (occurrence: None)
  Receive Date: 20120125
  Receipt Date: 20120120
  Transmission Date: 20120608
  Serious: No
  Sender: FDA-Public Use
  Company Number: US-PFIZER INC-2012017238

PATIENT
  Sex: Female
  Weight: 106 kg

DRUGS (2)
  1. ACCURETIC [Suspect]
     Dosage: UNK
     Route: 048
  2. ACCURETIC [Suspect]
     Indication: HYPERTENSION
     Dosage: 20/12.5 MG, 1X/DAY
     Route: 048

REACTIONS (1)
  - DRUG INEFFECTIVE [None]
